FAERS Safety Report 6099452-3 (Version None)
Quarter: 2009Q1

REPORT INFORMATION
  Report Type: 
  Country: None (occurrence: None)
  Receive Date: 20090226
  Receipt Date: 20090213
  Transmission Date: 20090719
  Serious: Yes (Hospitalization, Other)
  Sender: FDA-Public Use
  Company Number: SPV1-2009-00229

PATIENT
  Age: 75 Year
  Sex: Female

DRUGS (1)
  1. FOSRENOL [Suspect]
     Indication: HYPERPHOSPHATAEMIA
     Dosage: 500 MG, WITH BREAKFAST, ORAL, 1000 MG, 2 X 500 MG WITH LUNCH + DINNER, ORAL
     Route: 048

REACTIONS (2)
  - CLOSTRIDIAL INFECTION [None]
  - LOWER LIMB FRACTURE [None]
